FAERS Safety Report 26097435 (Version 2)
Quarter: 2025Q4

REPORT INFORMATION
  Report Type: Spontaneous
  Country: EU (occurrence: EU)
  Receive Date: 20251127
  Receipt Date: 20251222
  Transmission Date: 20260118
  Serious: Yes (Hospitalization)
  Sender: ELI LILLY AND COMPANY
  Company Number: EU-ELI_LILLY_AND_COMPANY-FR202511026146

PATIENT
  Age: 74 Year
  Sex: Female
  Weight: 60 kg

DRUGS (6)
  1. PEMETREXED [Suspect]
     Active Substance: PEMETREXED
     Indication: Lung adenocarcinoma
     Dosage: 820 MG, UNKNOWN
     Route: 042
     Dates: start: 20250930
  2. PEMETREXED [Suspect]
     Active Substance: PEMETREXED
     Dosage: 648 MG, UNKNOWN
     Route: 042
     Dates: start: 20251020
  3. CARBOPLATIN [Suspect]
     Active Substance: CARBOPLATIN
     Indication: Lung adenocarcinoma
     Dosage: 453.35 MG, UNKNOWN
     Route: 042
     Dates: start: 20250930
  4. CARBOPLATIN [Suspect]
     Active Substance: CARBOPLATIN
     Dosage: 393.86 MG, UNKNOWN
     Route: 042
     Dates: start: 20251020
  5. AMIVANTAMAB [Suspect]
     Active Substance: AMIVANTAMAB
     Indication: Lung adenocarcinoma
     Dosage: 1050 MG PER CYCLE
     Route: 042
     Dates: start: 20250930
  6. AMIVANTAMAB [Suspect]
     Active Substance: AMIVANTAMAB
     Dosage: 350 MG PER CYCLE
     Route: 042

REACTIONS (1)
  - Febrile bone marrow aplasia [Recovered/Resolved]

NARRATIVE: CASE EVENT DATE: 20251009
